FAERS Safety Report 8520163-6 (Version None)
Quarter: 2012Q3

REPORT INFORMATION
  Report Type: 
  Country: None (occurrence: None)
  Receive Date: 20120719
  Receipt Date: 20120711
  Transmission Date: 20120928
  Serious: Yes (Death)
  Sender: FDA-Public Use
  Company Number: US-SANOFI-AVENTIS-2012SA041375

PATIENT
  Age: 47 Year
  Sex: Male
  Weight: 98.2 kg

DRUGS (11)
  1. NORCO [Concomitant]
     Indication: PAIN
  2. PLAVIX [Suspect]
     Indication: STENT PLACEMENT
     Route: 048
     Dates: start: 20090812, end: 20120510
  3. METFORMIN HYDROCHLORIDE [Concomitant]
  4. COREG [Concomitant]
  5. LANTUS [Concomitant]
  6. PLAVIX [Suspect]
     Indication: CORONARY ARTERY DISEASE
     Route: 048
     Dates: start: 20090812, end: 20120510
  7. LISINOPRIL [Concomitant]
  8. NITROSTAT [Concomitant]
     Indication: CHEST PAIN
  9. SIMVASTATIN [Concomitant]
  10. AMARYL [Concomitant]
     Indication: DIABETES MELLITUS
     Route: 048
  11. LASIX [Concomitant]

REACTIONS (1)
  - MYOCARDIAL INFARCTION [None]
